FAERS Safety Report 18947240 (Version 18)
Quarter: 2021Q4

REPORT INFORMATION
  Report Type: Report from Study
  Country: IT (occurrence: IT)
  Receive Date: 20210227
  Receipt Date: 20211109
  Transmission Date: 20220303
  Serious: Yes (Hospitalization)
  Sender: FDA-Public Use
  Company Number: IT-AMGEN-ITACT2021029842

PATIENT
  Age: 70 Year
  Sex: Male
  Weight: 96 kg

DRUGS (27)
  1. BLINATUMOMAB [Suspect]
     Active Substance: BLINATUMOMAB
     Indication: Acute lymphocytic leukaemia
     Dosage: 28 MICROGRAM
     Route: 042
     Dates: start: 20210201
  2. DEXAMETHASONE [Concomitant]
     Active Substance: DEXAMETHASONE
     Dosage: 4-20 MILLIGRAM
     Dates: start: 20210125, end: 20210303
  3. LASIX [Concomitant]
     Active Substance: FUROSEMIDE
     Dosage: 25 MILLIGRAM
     Route: 042
     Dates: start: 20210125, end: 20210224
  4. HYDROCORTISONE SODIUM SUCCINATE [Concomitant]
     Active Substance: HYDROCORTISONE SODIUM SUCCINATE
     Dosage: 100 MILLIGRAM
     Route: 042
     Dates: start: 20210202, end: 20210203
  5. KEPPRA [Concomitant]
     Active Substance: LEVETIRACETAM
     Dosage: 500 MILLIGRAM
     Route: 048
     Dates: start: 20210201, end: 20210310
  6. VANCOMYCIN [Concomitant]
     Active Substance: VANCOMYCIN
     Dosage: 1-2 GRAM
     Route: 042
     Dates: start: 20210203, end: 20210217
  7. AMIKACIN [Concomitant]
     Active Substance: AMIKACIN
     Dosage: 1500 MILLIGRAM AND 1.5 GRAM
     Route: 042
     Dates: start: 20210202, end: 20210305
  8. CEFTAZIDIME [Concomitant]
     Active Substance: CEFTAZIDIME
     Dosage: 2 GRAM
     Route: 042
     Dates: start: 20210202, end: 20210309
  9. PERFALGAN [Concomitant]
     Active Substance: ACETAMINOPHEN
     Dosage: 1 UNK
     Route: 042
     Dates: start: 20210202, end: 20210302
  10. HYDROCHLOROTHIAZIDE\OLMESARTAN MEDOXOMIL [Concomitant]
     Active Substance: HYDROCHLOROTHIAZIDE\OLMESARTAN MEDOXOMIL
     Dosage: 32.5 MILLIGRAM
     Route: 048
     Dates: start: 202010
  11. OMEPRAZOLE [Concomitant]
     Active Substance: OMEPRAZOLE
     Dosage: 20 MILLIGRAM
     Route: 048
     Dates: start: 202011, end: 20210422
  12. LEVOFLOXACIN [Concomitant]
     Active Substance: LEVOFLOXACIN
     Dosage: 500 MILLIGRAM
     Route: 048
     Dates: start: 202011, end: 20210301
  13. POSACONAZOLE [Concomitant]
     Active Substance: POSACONAZOLE
     Dosage: 300 MILLIGRAM
     Route: 048
     Dates: start: 20210201, end: 20210206
  14. BACTRIM [Concomitant]
     Active Substance: SULFAMETHOXAZOLE\TRIMETHOPRIM
     Dosage: 1 UNK
     Route: 048
     Dates: start: 20210131, end: 20210618
  15. VFEND [Concomitant]
     Active Substance: VORICONAZOLE
     Dosage: 200-400 MILLIGRAM
     Route: 048
     Dates: start: 20210207, end: 20210810
  16. ACYCLOVIR [Concomitant]
     Active Substance: ACYCLOVIR
     Dosage: 400 MILLIGRAM
     Route: 048
     Dates: start: 202011, end: 20210518
  17. FASTURTEC [Concomitant]
     Active Substance: RASBURICASE
     Dosage: 7.5 MILLIGRAM
     Route: 042
     Dates: start: 20210125, end: 20210212
  18. ALBUMIN HUMAN [Concomitant]
     Active Substance: ALBUMIN HUMAN
     Dosage: 1-4 UNK
     Route: 042
     Dates: start: 20210203, end: 20210224
  19. NOREPINEPHRINE [Concomitant]
     Active Substance: NOREPINEPHRINE
     Dosage: 2 MILLIGRAM
     Route: 042
     Dates: start: 20210203, end: 20210207
  20. INSULIN NOS [Concomitant]
     Active Substance: INSULIN NOS
     Dosage: 1 UNK
     Route: 058
     Dates: start: 2020, end: 20210527
  21. RINGER [CALCIUM CHLORIDE;POTASSIUM CHLORIDE] [Concomitant]
     Dosage: 500 MILLIGRAM
     Route: 042
     Dates: start: 20210203, end: 20210203
  22. BROMAZEPAM [Concomitant]
     Active Substance: BROMAZEPAM
     Dosage: 15 GTT DROPS
     Route: 048
     Dates: start: 202012
  23. AVODART [Concomitant]
     Active Substance: DUTASTERIDE
     Dosage: 1 UNK
     Route: 048
     Dates: start: 20210213, end: 20210812
  24. CANRENONE [Concomitant]
     Active Substance: CANRENONE
     Dosage: 1 UNK
     Route: 042
     Dates: start: 20210207, end: 20210210
  25. OXYGEN [Concomitant]
     Active Substance: OXYGEN
     Dosage: 40 UNK
     Dates: start: 20210203, end: 20210204
  26. NYSTATIN [Concomitant]
     Active Substance: NYSTATIN
     Dosage: 1 UNK
     Route: 061
     Dates: start: 20210201, end: 20210812
  27. TAMSULOSIN [Concomitant]
     Active Substance: TAMSULOSIN
     Dosage: 1 UNK
     Route: 048
     Dates: start: 20210212, end: 20210423

REACTIONS (1)
  - Peripheral sensorimotor neuropathy [Not Recovered/Not Resolved]

NARRATIVE: CASE EVENT DATE: 20210220
